FAERS Safety Report 9690040 (Version 2)
Quarter: 2013Q4

REPORT INFORMATION
  Report Type: Spontaneous
  Country: US (occurrence: US)
  Receive Date: 20131115
  Receipt Date: 20131115
  Transmission Date: 20140711
  Serious: No
  Sender: FDA-Public Use
  Company Number: US-US-EMD SERONO, INC.-7070458

PATIENT
  Sex: Female
  Weight: 75 kg

DRUGS (5)
  1. REBIF [Suspect]
     Indication: MULTIPLE SCLEROSIS
     Route: 058
     Dates: start: 20040308
  2. SCOPOLAMINE [Suspect]
     Indication: MOTION SICKNESS
     Route: 062
  3. ALEVE [Concomitant]
     Indication: PREMEDICATION
  4. ATIVAN [Concomitant]
  5. CHOLORQUINE [Concomitant]
     Indication: MALARIA PROPHYLAXIS

REACTIONS (16)
  - Adverse drug reaction [Recovered/Resolved]
  - Psychotic behaviour [Recovered/Resolved]
  - Hallucination [Recovered/Resolved]
  - Mydriasis [Unknown]
  - Dry mouth [Unknown]
  - Dysphagia [Recovered/Resolved]
  - Memory impairment [Unknown]
  - Dysphonia [Unknown]
  - Diarrhoea infectious [Unknown]
  - Dizziness [Unknown]
  - Bladder disorder [Unknown]
  - Weight increased [Unknown]
  - Refraction disorder [Unknown]
  - Thyroid disorder [Unknown]
  - Influenza like illness [Unknown]
  - Fatigue [Unknown]
